FAERS Safety Report 12957290 (Version 1)
Quarter: 2016Q4

REPORT INFORMATION
  Report Type: Spontaneous
  Country: US (occurrence: US)
  Receive Date: 20161118
  Receipt Date: 20161118
  Transmission Date: 20170207
  Serious: Yes (Other)
  Sender: FDA-Public Use
  Company Number: US-KADMON PHARMACEUTICALS, LLC-KAD201611-004176

PATIENT
  Age: 63 Year
  Sex: Female

DRUGS (5)
  1. ELBASVIR [Suspect]
     Active Substance: ELBASVIR
     Indication: HEPATITIS C
  2. MYCOPHENOLATE [Concomitant]
     Active Substance: MYCOPHENOLIC ACID
  3. TACROLIMUS. [Concomitant]
     Active Substance: TACROLIMUS
  4. RIBAVIRIN. [Suspect]
     Active Substance: RIBAVIRIN
     Indication: HEPATITIS C
  5. GRAZOPREVIR [Suspect]
     Active Substance: GRAZOPREVIR
     Indication: HEPATITIS C

REACTIONS (1)
  - Pancreas transplant rejection [Recovering/Resolving]
